FAERS Safety Report 19626308 (Version 1)
Quarter: 2021Q3

REPORT INFORMATION
  Report Type: Spontaneous
  Country: US (occurrence: US)
  Receive Date: 20210729
  Receipt Date: 20210729
  Transmission Date: 20211014
  Serious: Yes (Hospitalization)
  Sender: FDA-Public Use
  Company Number: US-STRIDES ARCOLAB LIMITED-2021SP025503

PATIENT
  Age: 84 Year
  Sex: Male

DRUGS (4)
  1. METHYLPREDNISOLONE. [Suspect]
     Active Substance: METHYLPREDNISOLONE
     Indication: ASTHMA LATE ONSET
     Dosage: 40 MILLIGRAM, QD
     Route: 042
  2. VANCOMYCIN [Concomitant]
     Active Substance: VANCOMYCIN
     Indication: EVIDENCE BASED TREATMENT
     Dosage: 1000 MILLIGRAM
     Route: 042
  3. PIPERACILLIN/TAZOBACTAM [Concomitant]
     Active Substance: PIPERACILLIN SODIUM\TAZOBACTAM SODIUM
     Indication: EVIDENCE BASED TREATMENT
     Dosage: 3.375 GRAM, QD
     Route: 042
  4. PREDNISOLONE. [Suspect]
     Active Substance: PREDNISOLONE
     Indication: ASTHMA LATE ONSET
     Dosage: 40 MILLIGRAM, QD
     Route: 048

REACTIONS (4)
  - Respiratory failure [Recovered/Resolved]
  - Asthma late onset [Recovered/Resolved]
  - Condition aggravated [Recovered/Resolved]
  - Strongyloidiasis [Recovered/Resolved]
